FAERS Safety Report 23897502 (Version 4)
Quarter: 2024Q2

REPORT INFORMATION
  Report Type: Report from Study
  Country: JP (occurrence: JP)
  Receive Date: 20240524
  Receipt Date: 20240620
  Transmission Date: 20240716
  Serious: Yes (Death, Life-Threatening, Hospitalization, Other)
  Sender: FDA-Public Use
  Company Number: JP-PFIZER INC-202400175465

PATIENT
  Age: 70 Year
  Sex: Male
  Weight: 69 kg

DRUGS (4)
  1. CIBINQO [Suspect]
     Active Substance: ABROCITINIB
     Dosage: 100 MG, 1X/DAY (AFTER DINNER)
     Dates: start: 20240304, end: 20240412
  2. NEORAL [Concomitant]
     Active Substance: CYCLOSPORINE
     Indication: Dermatitis atopic
     Dosage: UNK
     Route: 048
     Dates: start: 20240115, end: 20240225
  3. BETAMETHASONE DIPROPIONATE [Concomitant]
     Active Substance: BETAMETHASONE DIPROPIONATE
     Indication: Pruritus
     Dosage: UNK
     Route: 062
     Dates: start: 20230913
  4. PARAFFIN [Concomitant]
     Active Substance: PARAFFIN
     Indication: Pruritus
     Dosage: UNK
     Route: 062
     Dates: start: 20230913

REACTIONS (1)
  - Cutaneous T-cell lymphoma [Fatal]

NARRATIVE: CASE EVENT DATE: 20240411
